FAERS Safety Report 6380115-1 (Version None)
Quarter: 2009Q3

REPORT INFORMATION
  Report Type: 
  Country: None (occurrence: None)
  Receive Date: 20090929
  Receipt Date: 20070709
  Transmission Date: 20100115
  Serious: Yes (Other)
  Sender: FDA-Public Use
  Company Number: US-ASTRAZENECA-2006UW26448

PATIENT
  Age: 8403 Day
  Sex: Female
  Weight: 94.8 kg

DRUGS (15)
  1. SEROQUEL [Suspect]
     Indication: SCHIZOPHRENIA
     Route: 048
     Dates: start: 20010226, end: 20030715
  2. SEROQUEL [Suspect]
     Indication: DEPRESSION
     Route: 048
     Dates: start: 20010226, end: 20030715
  3. SEROQUEL [Suspect]
     Route: 048
     Dates: start: 20010226
  4. SEROQUEL [Suspect]
     Route: 048
     Dates: start: 20010226
  5. SYNTHROID [Concomitant]
     Dates: start: 20040920
  6. PROZAC [Concomitant]
     Dates: start: 20010208
  7. ZYPREXA [Concomitant]
     Dates: start: 20010208
  8. CARBATROL [Concomitant]
     Dates: start: 20010226
  9. CLONAZEPAM [Concomitant]
     Dates: start: 20010226
  10. REMERON [Concomitant]
     Dates: start: 20010226
  11. WELLBUTRIN SR [Concomitant]
     Dates: start: 20010312
  12. RISPERDAL [Concomitant]
     Dates: start: 20010312
  13. LEXAPRO [Concomitant]
     Dates: start: 20070417
  14. XANAX [Concomitant]
     Dates: start: 20070417
  15. AVANDIA [Concomitant]
     Dates: start: 20050923

REACTIONS (5)
  - DIABETES MELLITUS [None]
  - DIABETES MELLITUS INADEQUATE CONTROL [None]
  - GESTATIONAL DIABETES [None]
  - TYPE 1 DIABETES MELLITUS [None]
  - TYPE 2 DIABETES MELLITUS [None]
